FAERS Safety Report 20949951 (Version 3)
Quarter: 2024Q1

REPORT INFORMATION
  Report Type: Report from Study
  Country: US (occurrence: US)
  Receive Date: 20220613
  Receipt Date: 20240125
  Transmission Date: 20240409
  Serious: Yes (Hospitalization, Other)
  Sender: FDA-Public Use
  Company Number: US-SUN PHARMACEUTICAL INDUSTRIES LTD-2022R1-339759

PATIENT
  Age: 69 Year
  Sex: Male
  Weight: 99.773 kg

DRUGS (4)
  1. TILDRAKIZUMAB [Suspect]
     Active Substance: TILDRAKIZUMAB
     Indication: Psoriasis
     Dosage: 100 MILLIGRAM, Q 12 WEEKS
     Route: 058
     Dates: start: 20200325
  2. ASPIRIN [Concomitant]
     Active Substance: ASPIRIN
     Indication: Product used for unknown indication
     Route: 065
  3. Moderna COVID-19 Vaccination [Concomitant]
     Indication: COVID-19
     Dosage: UNK
     Route: 065
     Dates: start: 20210218
  4. Moderna COVID-19 Vaccination [Concomitant]
     Dosage: UNK
     Route: 065
     Dates: start: 20210317

REACTIONS (3)
  - Sinusitis [Unknown]
  - Knee arthroplasty [Unknown]
  - Osteoarthritis [Recovered/Resolved]

NARRATIVE: CASE EVENT DATE: 20220501
